FAERS Safety Report 6024952-1 (Version None)
Quarter: 2008Q4

REPORT INFORMATION
  Report Type: 
  Country: None (occurrence: None)
  Receive Date: 20081231
  Receipt Date: 20081226
  Transmission Date: 20090506
  Serious: Yes (Life-Threatening, Hospitalization)
  Sender: FDA-Public Use
  Company Number: JP-BRISTOL-MYERS SQUIBB COMPANY-14434526

PATIENT
  Age: 72 Year
  Sex: Female

DRUGS (8)
  1. ERBITUX [Suspect]
     Indication: COLON CANCER METASTATIC
     Route: 042
     Dates: start: 20081202, end: 20081202
  2. IRINOTECAN HCL [Suspect]
     Indication: COLON CANCER METASTATIC
     Dosage: FORM = INJ
     Route: 042
     Dates: start: 20081202, end: 20081202
  3. CHLOR-TRIMETON [Concomitant]
     Indication: PREMEDICATION
     Dosage: FORM = INJ
     Route: 042
     Dates: start: 20081202, end: 20081202
  4. DECADRON [Concomitant]
     Indication: PREMEDICATION
     Dosage: DEXAMETHASONE MERCK. FORM = INJ
     Route: 042
     Dates: start: 20081202, end: 20081202
  5. KYTRIL [Concomitant]
     Indication: PROPHYLAXIS OF NAUSEA AND VOMITING
     Dosage: GRANISETRON KR. FORM = INJ
     Route: 042
     Dates: start: 20081202, end: 20081202
  6. METFORMIN HCL [Concomitant]
     Indication: DIABETES MELLITUS
     Route: 048
  7. EUGLUCON [Concomitant]
     Indication: DIABETES MELLITUS
     Route: 048
  8. TRICHLORMETHIAZIDE [Concomitant]
     Indication: HYPERTENSION
     Route: 048

REACTIONS (4)
  - ANOREXIA [None]
  - DIARRHOEA [None]
  - NEUTROPHIL COUNT DECREASED [None]
  - WHITE BLOOD CELL COUNT DECREASED [None]
